FAERS Safety Report 15059640 (Version 1)
Quarter: 2018Q2

REPORT INFORMATION
  Report Type: Spontaneous
  Country: US (occurrence: US)
  Receive Date: 20180625
  Receipt Date: 20180625
  Transmission Date: 20180711
  Serious: No
  Sender: FDA-Public Use
  Company Number: US-SA-2018SA132676

PATIENT
  Age: 85 Year
  Sex: Female
  Weight: 190 kg

DRUGS (1)
  1. LANTUS SOLOSTAR [Suspect]
     Active Substance: INSULIN GLARGINE
     Indication: TYPE 2 DIABETES MELLITUS
     Dosage: 20 DF,QD
     Route: 065
     Dates: start: 2005, end: 2018

REACTIONS (1)
  - Visual impairment [Unknown]
